FAERS Safety Report 9170146 (Version 1)
Quarter: 2013Q1

REPORT INFORMATION
  Report Type: Spontaneous
  Country: US (occurrence: None)
  Receive Date: 20130314
  Receipt Date: 20130314
  Transmission Date: 20140127
  Serious: Yes (Other)
  Sender: FDA-Public Use
  Company Number: None

PATIENT
  Age: 30 Year
  Sex: Male
  Weight: 97.52 kg

DRUGS (6)
  1. OLANZAPINE [Suspect]
     Indication: SCHIZOPHRENIA
     Dosage: 5MG 1 A DAY PO
     Route: 048
     Dates: start: 20130306, end: 20130310
  2. OLANZAPINE [Suspect]
     Indication: DEPRESSION
     Dosage: 5MG 1 A DAY PO
     Route: 048
     Dates: start: 20130306, end: 20130310
  3. OLANZAPINE [Suspect]
     Indication: SCHIZOPHRENIA
     Dosage: 5MG 1 A DAY PO
     Route: 048
  4. OLANZAPINE [Suspect]
     Indication: DEPRESSION
     Dosage: 5MG 1 A DAY PO
     Route: 048
  5. FLUOXETINE [Concomitant]
  6. MELOXICAM [Concomitant]

REACTIONS (9)
  - Insomnia [None]
  - Palpitations [None]
  - Anxiety [None]
  - Panic attack [None]
  - Mental disorder [None]
  - Nausea [None]
  - Vomiting [None]
  - Drug intolerance [None]
  - Product substitution issue [None]
